FAERS Safety Report 12639486 (Version 2)
Quarter: 2016Q3

REPORT INFORMATION
  Report Type: Report from Study
  Country: DE (occurrence: DE)
  Receive Date: 20160810
  Receipt Date: 20160921
  Transmission Date: 20161109
  Serious: Yes (Hospitalization)
  Sender: FDA-Public Use
  Company Number: DE-BIOGEN-2016BI00274982

PATIENT
  Age: 51 Year
  Sex: Male
  Weight: 71 kg

DRUGS (2)
  1. TECFIDERA [Suspect]
     Active Substance: DIMETHYL FUMARATE
     Dosage: TOTAL OF 360 PER DAY (120 AND 240)
     Route: 048
     Dates: start: 201607, end: 20160725
  2. TECFIDERA [Suspect]
     Active Substance: DIMETHYL FUMARATE
     Indication: MULTIPLE SCLEROSIS
     Dosage: TOTAL OF 360 PER DAY (120 AND 240)
     Route: 048
     Dates: start: 201607, end: 20160725

REACTIONS (7)
  - Mental impairment [Unknown]
  - Erythema [Unknown]
  - Skin burning sensation [Unknown]
  - Dyspnoea [Unknown]
  - Underdose [Unknown]
  - Allergic respiratory symptom [Unknown]
  - Flushing [Unknown]

NARRATIVE: CASE EVENT DATE: 201607
